FAERS Safety Report 9390886 (Version 1)
Quarter: 2013Q3

REPORT INFORMATION
  Report Type: Spontaneous
  Country: US (occurrence: None)
  Receive Date: 20130705
  Receipt Date: 20130705
  Transmission Date: 20140515
  Serious: No
  Sender: FDA-Public Use
  Company Number: None

PATIENT
  Age: 86 Year
  Sex: Female

DRUGS (3)
  1. FORTEO [Suspect]
     Route: 048
     Dates: start: 20130501, end: 20130604
  2. AVISTA [Concomitant]
  3. WARFARIN [Concomitant]

REACTIONS (1)
  - Pain in extremity [None]
